FAERS Safety Report 9717856 (Version 1)
Quarter: 2013Q4

REPORT INFORMATION
  Report Type: Spontaneous
  Country: FR (occurrence: FR)
  Receive Date: 20131127
  Receipt Date: 20131127
  Transmission Date: 20140711
  Serious: Yes (Hospitalization)
  Sender: FDA-Public Use
  Company Number: FR-B.I. PHARMACEUTICALS,INC./RIDGEFIELD-2013-FF-02742FF

PATIENT
  Age: 67 Year
  Sex: Female

DRUGS (7)
  1. PRADAXA [Suspect]
     Indication: ATRIAL FIBRILLATION
     Dosage: 300 MG
     Route: 048
     Dates: start: 2013, end: 2013
  2. DAONIL [Concomitant]
     Indication: DIABETES MELLITUS
  3. GLUCOPHAGE [Concomitant]
     Indication: DIABETES MELLITUS
  4. LANTUS [Concomitant]
     Indication: DIABETES MELLITUS
  5. APROVEL [Concomitant]
     Indication: HYPERTENSION
  6. CORDARONE [Concomitant]
     Indication: ATRIAL FIBRILLATION
  7. NEBIVOLOL [Concomitant]
     Indication: ATRIAL FIBRILLATION

REACTIONS (8)
  - Meningitis [Recovered/Resolved]
  - Pseudomembranous colitis [Recovered/Resolved]
  - Melaena [Unknown]
  - Gingival bleeding [Unknown]
  - Menorrhagia [Unknown]
  - Anaemia [Unknown]
  - Diarrhoea [Unknown]
  - Pyrexia [Unknown]
